FAERS Safety Report 4437458-8 (Version None)
Quarter: 2004Q3

REPORT INFORMATION
  Report Type: 
  Country: None (occurrence: None)
  Receive Date: 20040830
  Receipt Date: 20030929
  Transmission Date: 20050211
  Serious: Yes (Hospitalization, Disabling)
  Sender: FDA-Public Use
  Company Number: US-MERCK-0310USA00083

PATIENT
  Age: 32 Year
  Sex: Male
  Weight: 114 kg

DRUGS (15)
  1. NORVASC [Concomitant]
     Route: 065
     Dates: start: 19990101, end: 20010101
  2. LOTREL [Concomitant]
     Route: 065
  3. COREG [Concomitant]
     Route: 065
  4. CLONIDINE [Concomitant]
     Route: 065
  5. CLONIDINE [Concomitant]
     Route: 048
     Dates: start: 20020101
  6. DIGITEK [Concomitant]
     Route: 065
     Dates: start: 20020101
  7. NEXIUM [Concomitant]
     Route: 065
  8. LISINOPRIL [Concomitant]
     Route: 065
  9. REGLAN [Concomitant]
     Route: 065
  10. MINOXIDIL [Concomitant]
     Route: 065
     Dates: start: 20020101
  11. MINOXIDIL [Concomitant]
     Route: 065
     Dates: start: 20020122, end: 20020122
  12. MINOXIDIL [Concomitant]
     Route: 065
     Dates: end: 20020101
  13. VIOXX [Suspect]
     Indication: PAIN
     Route: 048
     Dates: start: 20010101, end: 20020101
  14. ZOCOR [Concomitant]
     Route: 048
     Dates: start: 20020101
  15. SPIRONOLACTONE [Concomitant]
     Route: 065

REACTIONS (38)
  - ABDOMINAL PAIN UPPER [None]
  - ANGINA PECTORIS [None]
  - ASTHENIA [None]
  - BACK PAIN [None]
  - BLOOD CHOLESTEROL INCREASED [None]
  - BLOOD CREATININE INCREASED [None]
  - BRONCHITIS [None]
  - CARDIAC FAILURE CONGESTIVE [None]
  - CONDITION AGGRAVATED [None]
  - CONGESTIVE CARDIOMYOPATHY [None]
  - COUGH [None]
  - DEPRESSION [None]
  - DIASTOLIC DYSFUNCTION [None]
  - DYSPEPSIA [None]
  - DYSPNOEA PAROXYSMAL NOCTURNAL [None]
  - EMOTIONAL DISTRESS [None]
  - ERECTILE DYSFUNCTION [None]
  - FACIAL PALSY [None]
  - GASTROENTERITIS VIRAL [None]
  - GASTROOESOPHAGEAL REFLUX DISEASE [None]
  - HAEMOGLOBIN DECREASED [None]
  - HYPERTENSION [None]
  - HYPERTENSIVE CARDIOMYOPATHY [None]
  - INSOMNIA [None]
  - MITRAL VALVE INCOMPETENCE [None]
  - NASAL CONGESTION [None]
  - NECK INJURY [None]
  - NECK PAIN [None]
  - PRODUCTIVE COUGH [None]
  - PULMONARY VALVE INCOMPETENCE [None]
  - RHINORRHOEA [None]
  - ROAD TRAFFIC ACCIDENT [None]
  - SINUS BRADYCARDIA [None]
  - SINUSITIS [None]
  - SLEEP APNOEA SYNDROME [None]
  - SUPRAVENTRICULAR EXTRASYSTOLES [None]
  - UPPER RESPIRATORY TRACT INFECTION [None]
  - VENTRICULAR EXTRASYSTOLES [None]
